FAERS Safety Report 11721226 (Version 1)
Quarter: 2015Q4

REPORT INFORMATION
  Report Type: Spontaneous
  Country: US (occurrence: US)
  Receive Date: 20151110
  Receipt Date: 20151110
  Transmission Date: 20160304
  Serious: Yes (Other)
  Sender: FDA-Public Use
  Company Number: US-009507513-1511USA003546

PATIENT
  Age: 54 Year
  Sex: Female

DRUGS (9)
  1. PEGINTRON [Suspect]
     Active Substance: PEGINTERFERON ALFA-2B
     Indication: HEPATITIS C
     Dosage: UNK
  2. CELECOXIB. [Suspect]
     Active Substance: CELECOXIB
     Dosage: UNK
     Dates: end: 200605
  3. EFFEXOR [Concomitant]
     Active Substance: VENLAFAXINE HYDROCHLORIDE
  4. MOTRIN [Suspect]
     Active Substance: IBUPROFEN
     Dosage: UNK
     Dates: start: 200606, end: 200606
  5. TYLENOL [Concomitant]
     Active Substance: ACETAMINOPHEN
  6. VITAMINS (UNSPECIFIED) [Concomitant]
     Active Substance: VITAMINS
  7. CHONDROITIN SULFATE SODIUM (+) GLUCOSAMINE SULFATE [Concomitant]
  8. RIBASPHERE [Suspect]
     Active Substance: RIBAVIRIN
     Indication: HEPATITIS C
     Dosage: UNK
  9. BENADRYL [Concomitant]
     Active Substance: DIPHENHYDRAMINE HYDROCHLORIDE

REACTIONS (12)
  - Muscle spasms [Unknown]
  - Headache [Unknown]
  - Extrasystoles [Recovered/Resolved]
  - Extrasystoles [Recovered/Resolved]
  - Heart rate decreased [Recovered/Resolved]
  - Fatigue [Not Recovered/Not Resolved]
  - Heart rate increased [Unknown]
  - Pruritus [Recovered/Resolved]
  - Alopecia [Not Recovered/Not Resolved]
  - Dry skin [Unknown]
  - Dizziness [Recovered/Resolved]
  - Heart rate decreased [Recovered/Resolved]

NARRATIVE: CASE EVENT DATE: 200605
